FAERS Safety Report 4619347-9 (Version None)
Quarter: 2005Q2

REPORT INFORMATION
  Report Type: 
  Country: None (occurrence: None)
  Receive Date: 20050321
  Receipt Date: 20040318
  Transmission Date: 20051028
  Serious: Yes (Hospitalization, Other)
  Sender: FDA-Public Use
  Company Number: 2004-03-1483

PATIENT
  Age: 37 Year
  Sex: Male

DRUGS (3)
  1. PEG-INTRON [Suspect]
     Indication: HEPATITIS C
     Dosage: 1.5 MCG/ KG SUBCUTANEOUS
     Route: 058
     Dates: start: 20040227, end: 20040315
  2. REBETOL [Suspect]
     Indication: HEPATITIS C
     Dosage: ORAL
     Route: 048
     Dates: start: 20040227, end: 20040324
  3. STELAZINE FOR ANTI-PSYCHOTIC [Concomitant]

REACTIONS (3)
  - CONVULSION [None]
  - DELUSION [None]
  - HYPERHIDROSIS [None]
